FAERS Safety Report 5019211-X (Version None)
Quarter: 2006Q2

REPORT INFORMATION
  Report Type: 
  Country: None (occurrence: None)
  Receive Date: 20060531
  Receipt Date: 20060516
  Transmission Date: 20061013
  Serious: Yes (Other)
  Sender: FDA-Public Use
  Company Number: 222229

PATIENT
  Age: 54 Year
  Sex: Female
  Weight: 66 kg

DRUGS (5)
  1. HERCEPTIN [Suspect]
     Indication: BREAST CANCER
     Dosage: 8 MG/KG, INTRAVENOUS
     Route: 042
     Dates: start: 20051220
  2. ACETAMINOPHEN [Concomitant]
  3. DIPHENHYDRAMINE (DIPHENHYDRAMINE NOS) [Concomitant]
  4. TERBUTALINE (TERBUTALINE SULFATE) [Concomitant]
  5. BUDESONIDE [Concomitant]

REACTIONS (19)
  - ALANINE AMINOTRANSFERASE INCREASED [None]
  - ASPARTATE AMINOTRANSFERASE INCREASED [None]
  - ASTHENIA [None]
  - BLOOD CREATINE PHOSPHOKINASE INCREASED [None]
  - BLOOD CREATINE PHOSPHOKINASE MB INCREASED [None]
  - BLOOD LACTATE DEHYDROGENASE INCREASED [None]
  - BRONCHITIS [None]
  - DIARRHOEA [None]
  - FAECES DISCOLOURED [None]
  - HYPERTHERMIA [None]
  - LYMPHOCYTE COUNT DECREASED [None]
  - MUSCULAR WEAKNESS [None]
  - MUSCULOSKELETAL STIFFNESS [None]
  - OEDEMA PERIPHERAL [None]
  - PAIN IN JAW [None]
  - RED BLOOD CELL COUNT DECREASED [None]
  - SINUSITIS [None]
  - SPEECH DISORDER [None]
  - VISUAL DISTURBANCE [None]
